FAERS Safety Report 7579176-3 (Version None)
Quarter: 2011Q2

REPORT INFORMATION
  Report Type: 
  Country: None (occurrence: None)
  Receive Date: 20110628
  Receipt Date: 20080728
  Transmission Date: 20111010
  Serious: Yes (Death, Other)
  Sender: FDA-Public Use
  Company Number: US-BAYER-200815516NA

PATIENT
  Sex: Male
  Weight: 82 kg

DRUGS (18)
  1. CLONIDINE [Concomitant]
     Indication: BLOOD PRESSURE ABNORMAL
     Dosage: UNK
     Dates: start: 20060719, end: 20061014
  2. NORVASC [Concomitant]
     Indication: BLOOD PRESSURE ABNORMAL
     Dosage: UNK
     Dates: start: 20060719, end: 20061014
  3. NIFEREX-150 FORTE [Concomitant]
     Indication: MINERAL SUPPLEMENTATION
     Dosage: UNK
     Dates: start: 20060719, end: 20061014
  4. CELLCEPT [Concomitant]
     Indication: PROPHYLAXIS AGAINST TRANSPLANT REJECTION
     Dosage: UNK
     Dates: start: 20060719, end: 20061014
  5. PREDNISONE [Concomitant]
     Indication: PROPHYLAXIS AGAINST TRANSPLANT REJECTION
     Dosage: UNK
     Dates: start: 20060719, end: 20061014
  6. RENAGEL [Concomitant]
  7. LABETALOL HCL [Concomitant]
  8. FOSRENOL [Concomitant]
  9. MAGNEVIST [Suspect]
     Indication: NUCLEAR MAGNETIC RESONANCE IMAGING
     Route: 042
     Dates: start: 20061011, end: 20061011
  10. OMNISCAN [Suspect]
     Indication: NUCLEAR MAGNETIC RESONANCE IMAGING
     Route: 042
     Dates: start: 20051105, end: 20051105
  11. HUMALOG [Concomitant]
     Indication: DIABETES MELLITUS
  12. INSULIN [Concomitant]
     Indication: TYPE 1 DIABETES MELLITUS
  13. OMNISCAN [Suspect]
     Route: 042
     Dates: start: 20051114, end: 20051114
  14. EPOGEN [Concomitant]
     Indication: ANAEMIA
     Dosage: UNK
     Dates: start: 20060719, end: 20061014
  15. LASIX [Concomitant]
  16. MAGNEVIST [Suspect]
     Route: 042
     Dates: start: 20061012, end: 20061012
  17. PROGRAF [Concomitant]
     Indication: PROPHYLAXIS AGAINST TRANSPLANT REJECTION
     Dosage: UNK
     Dates: start: 20060719, end: 20061014
  18. DILAUDID [Concomitant]
     Indication: PAIN
     Dosage: UNK
     Dates: start: 20060719, end: 20061014

REACTIONS (15)
  - NEPHROGENIC SYSTEMIC FIBROSIS [None]
  - DEPRESSION [None]
  - SKIN BURNING SENSATION [None]
  - JOINT STIFFNESS [None]
  - INJURY [None]
  - QUALITY OF LIFE DECREASED [None]
  - SKIN HYPERTROPHY [None]
  - PRURITUS [None]
  - EXTREMITY CONTRACTURE [None]
  - ANXIETY [None]
  - PAIN [None]
  - GENERAL PHYSICAL HEALTH DETERIORATION [None]
  - EMOTIONAL DISTRESS [None]
  - MOBILITY DECREASED [None]
  - SKIN INDURATION [None]
